FAERS Safety Report 14871537 (Version 1)
Quarter: 2018Q2

REPORT INFORMATION
  Report Type: Spontaneous
  Country: SE (occurrence: SE)
  Receive Date: 20180509
  Receipt Date: 20180509
  Transmission Date: 20180711
  Serious: Yes (Other)
  Sender: FDA-Public Use
  Company Number: SE-MYLANLABS-2018M1030483

PATIENT
  Age: 3 Year
  Sex: Male

DRUGS (1)
  1. ADRENALIN MYLAN 1 MG/ML INJEKTIONSV?TSKA, L?SNING [Suspect]
     Active Substance: EPINEPHRINE BITARTRATE
     Indication: BRONCHOSPASM
     Dosage: EVERY 3 RD HOUR

REACTIONS (2)
  - Medication error [Unknown]
  - No adverse event [Unknown]
